FAERS Safety Report 6176303-X (Version None)
Quarter: 2009Q2

REPORT INFORMATION
  Report Type: 
  Country: None (occurrence: None)
  Receive Date: 20090501
  Receipt Date: 20090428
  Transmission Date: 20091009
  Serious: Yes (Hospitalization)
  Sender: FDA-Public Use
  Company Number: US-GILEAD-2009-0021299

PATIENT
  Sex: Female
  Weight: 57.386 kg

DRUGS (9)
  1. LETAIRIS [Suspect]
     Indication: PULMONARY ARTERIAL HYPERTENSION
     Route: 048
     Dates: start: 20090317
  2. PRINIVIL [Concomitant]
  3. CARDIZEM CD [Concomitant]
  4. IMDUR [Concomitant]
  5. ADVAIR HFA [Concomitant]
  6. SPIRIVA [Concomitant]
  7. BUMEX [Concomitant]
  8. PREDNISONE [Concomitant]
  9. PRILOSEC [Concomitant]

REACTIONS (1)
  - CHRONIC OBSTRUCTIVE PULMONARY DISEASE [None]
